FAERS Safety Report 20355340 (Version 3)
Quarter: 2022Q1

REPORT INFORMATION
  Report Type: Spontaneous
  Country: JP (occurrence: JP)
  Receive Date: 20220120
  Receipt Date: 20220210
  Transmission Date: 20220423
  Serious: Yes (Hospitalization)
  Sender: FDA-Public Use
  Company Number: JP-TEVA-2022-JP-1999062

PATIENT
  Age: 72 Year
  Sex: Male

DRUGS (3)
  1. OXALIPLATIN [Suspect]
     Active Substance: OXALIPLATIN
     Indication: Rectal cancer metastatic
     Dosage: 130 MG/M2 DAILY; PART OF CAPOX REGIMEN AS ADJUVANT CHEMOTHERAPY, FOR 21 DAYS
     Route: 065
  2. CAPECITABINE [Concomitant]
     Active Substance: CAPECITABINE
     Indication: Rectal cancer metastatic
     Dosage: 2000 MG/M2 DAILY; PART OF CAPOX REGIMEN AS ADJUVANT CHEMOTHERAPY, ADMINISTERED FOR 14 CONSECUTIVE DA
     Route: 048
  3. CAPECITABINE [Concomitant]
     Active Substance: CAPECITABINE
     Dosage: 1500 MG/M2 DAILY; PART OF CAPOX REGIMEN AS ADJUVANT CHEMOTHERAPY, ADMINISTERED FOR 14 CONSECUTIVE DA
     Route: 048

REACTIONS (4)
  - Splenorenal shunt [Unknown]
  - Hyperammonaemia [Recovered/Resolved]
  - Hepatic encephalopathy [Unknown]
  - Venoocclusive liver disease [Unknown]
